FAERS Safety Report 10433719 (Version 3)
Quarter: 2015Q1

REPORT INFORMATION
  Report Type: Spontaneous
  Country: GB (occurrence: GB)
  Receive Date: 20140905
  Receipt Date: 20150204
  Transmission Date: 20150720
  Serious: Yes (Other)
  Sender: FDA-Public Use
  Company Number: GB-ACTAVISPR-2014-19938

PATIENT
  Sex: Female

DRUGS (3)
  1. KENTERA (WATSON LABORATORIES) [Suspect]
     Active Substance: OXYBUTYNIN
     Dosage: 2 DF, 1/WEEK
     Route: 062
     Dates: start: 2014
  2. KENTERA (WATSON LABORATORIES) [Suspect]
     Active Substance: OXYBUTYNIN
     Dosage: 1 UNK, UNK
     Route: 062
     Dates: start: 20140811
  3. KENTERA (WATSON LABORATORIES) [Suspect]
     Active Substance: OXYBUTYNIN
     Indication: HYPERTONIC BLADDER
     Dosage: 2 DF, 1/WEEK
     Route: 062
     Dates: start: 2014

REACTIONS (5)
  - Application site exfoliation [Unknown]
  - Application site erythema [Recovering/Resolving]
  - Wrong technique in drug usage process [Unknown]
  - Application site pain [Unknown]
  - Therapy cessation [Unknown]
